FAERS Safety Report 10250567 (Version 1)
Quarter: 2014Q2

REPORT INFORMATION
  Report Type: Spontaneous
  Country: NL (occurrence: NL)
  Receive Date: 20140620
  Receipt Date: 20140620
  Transmission Date: 20141212
  Serious: Yes (Disabling)
  Sender: FDA-Public Use
  Company Number: NL-ASTRAZENECA-2014SE41202

PATIENT
  Age: 48 Year
  Sex: Female
  Weight: 121 kg

DRUGS (1)
  1. METOPROLOL SUCCINAAT [Suspect]
     Indication: HYPERTENSION
     Route: 048
     Dates: start: 20090515

REACTIONS (2)
  - Feeling abnormal [Not Recovered/Not Resolved]
  - Disturbance in attention [Not Recovered/Not Resolved]
